FAERS Safety Report 5907414-9 (Version None)
Quarter: 2008Q4

REPORT INFORMATION
  Report Type: 
  Country: None (occurrence: None)
  Receive Date: 20081003
  Receipt Date: 20080926
  Transmission Date: 20090506
  Serious: Yes (Other)
  Sender: FDA-Public Use
  Company Number: A0739225A

PATIENT
  Age: 46 Year
  Sex: Male
  Weight: 68.2 kg

DRUGS (12)
  1. EPZICOM [Suspect]
     Indication: HIV INFECTION
     Dosage: 1TAB PER DAY
     Route: 048
     Dates: start: 20070701
  2. LEXIVA [Concomitant]
     Dosage: 700MG TWICE PER DAY
     Route: 048
  3. NORVIR [Concomitant]
     Dosage: 100MG TWICE PER DAY
     Route: 048
  4. MEPRON [Concomitant]
     Dosage: 1500MG PER DAY
     Route: 048
  5. AZITHROMYCIN [Concomitant]
     Dosage: 1200MG WEEKLY
     Route: 048
  6. MARINOL [Concomitant]
     Dosage: 5MG TWICE PER DAY
     Route: 048
  7. MEGACE [Concomitant]
     Dosage: 5CC PER DAY
     Route: 048
  8. LYRICA [Concomitant]
     Dosage: 150MG TWICE PER DAY
     Route: 048
  9. CHANTIX [Concomitant]
     Dosage: 1MG TWICE PER DAY
     Route: 048
  10. PROVENTIL [Concomitant]
     Dosage: 2PUFF AS REQUIRED
  11. SPIRIVA [Concomitant]
     Dosage: 1PUFF PER DAY
  12. UNKNOWN MEDICATION [Concomitant]
     Dosage: 6MG PER DAY
     Route: 058

REACTIONS (1)
  - RENAL FAILURE ACUTE [None]
